FAERS Safety Report 25630165 (Version 1)
Quarter: 2025Q3

REPORT INFORMATION
  Report Type: Spontaneous
  Country: CN (occurrence: CN)
  Receive Date: 20250801
  Receipt Date: 20250801
  Transmission Date: 20251021
  Serious: Yes (Other)
  Sender: NOVARTIS
  Company Number: CN-002147023-NVSC2025CN120868

PATIENT
  Age: 62 Year
  Sex: Female
  Weight: 40 kg

DRUGS (1)
  1. CARBAMAZEPINE [Suspect]
     Active Substance: CARBAMAZEPINE
     Indication: Epilepsy
     Dosage: 100.000 MG, BID
     Route: 048
     Dates: start: 20250702, end: 20250711

REACTIONS (3)
  - Inappropriate antidiuretic hormone secretion [Recovering/Resolving]
  - Hyponatraemia [Recovering/Resolving]
  - Hypochloraemia [Recovering/Resolving]

NARRATIVE: CASE EVENT DATE: 20250710
